FAERS Safety Report 10615672 (Version 1)
Quarter: 2014Q4

REPORT INFORMATION
  Report Type: Spontaneous
  Country: SE (occurrence: SE)
  Receive Date: 20141201
  Receipt Date: 20141201
  Transmission Date: 20150529
  Serious: Yes (Hospitalization)
  Sender: FDA-Public Use
  Company Number: SE-SA-2014SA159589

PATIENT
  Age: 88 Year
  Sex: Female

DRUGS (1)
  1. CEFOTAXIME [Suspect]
     Active Substance: CEFOTAXIME\CEFOTAXIME SODIUM
     Route: 065

REACTIONS (2)
  - Electrolyte imbalance [Recovered/Resolved]
  - Hypernatraemia [Recovered/Resolved]
